FAERS Safety Report 5529055-8 (Version None)
Quarter: 2007Q4

REPORT INFORMATION
  Report Type: 
  Country: None (occurrence: None)
  Receive Date: 20071129
  Receipt Date: 20061006
  Transmission Date: 20080405
  Serious: No
  Sender: FDA-Public Use
  Company Number: A0622744A

PATIENT
  Age: 53 Year
  Sex: Female

DRUGS (9)
  1. BUPROPION HYDROCHLORIDE [Suspect]
     Indication: DEPRESSION
     Dosage: 150MG PER DAY
     Route: 048
     Dates: start: 20060901
  2. SYNTHROID [Concomitant]
  3. AVAPRO [Concomitant]
  4. ZOLOFT [Concomitant]
  5. KLONOPIN [Concomitant]
  6. ELAVIL [Concomitant]
  7. COLACE [Concomitant]
  8. METHADONE [Concomitant]
  9. HUMIRA [Concomitant]

REACTIONS (1)
  - DYSGEUSIA [None]
